FAERS Safety Report 9185455 (Version 3)
Quarter: 2014Q1

REPORT INFORMATION
  Report Type: Spontaneous
  Country: US (occurrence: US)
  Receive Date: 20130325
  Receipt Date: 20140108
  Transmission Date: 20141002
  Serious: No
  Sender: FDA-Public Use
  Company Number: US-BIOGENIDEC-2013BI025495

PATIENT
  Age: 49 Year
  Sex: Female

DRUGS (1)
  1. TYSABRI [Suspect]
     Indication: MULTIPLE SCLEROSIS
     Route: 042
     Dates: start: 20121105, end: 20131218

REACTIONS (20)
  - Depression [Not Recovered/Not Resolved]
  - Diarrhoea [Not Recovered/Not Resolved]
  - Aphagia [Unknown]
  - Muscle spasms [Unknown]
  - Weight increased [Not Recovered/Not Resolved]
  - Cognitive disorder [Unknown]
  - Procedural complication [Unknown]
  - Suicidal ideation [Not Recovered/Not Resolved]
  - Abasia [Recovered/Resolved]
  - Musculoskeletal pain [Not Recovered/Not Resolved]
  - Joint lock [Recovered/Resolved]
  - Fibromyalgia [Not Recovered/Not Resolved]
  - Decreased appetite [Not Recovered/Not Resolved]
  - Migraine [Recovered/Resolved]
  - Ligament injury [Not Recovered/Not Resolved]
  - Drug intolerance [Recovered/Resolved]
  - Arthralgia [Not Recovered/Not Resolved]
  - Fatigue [Unknown]
  - Blood pressure decreased [Unknown]
  - Nausea [Not Recovered/Not Resolved]
